FAERS Safety Report 4398847-3 (Version None)
Quarter: 2004Q3

REPORT INFORMATION
  Report Type: 
  Country: None (occurrence: None)
  Receive Date: 20040712
  Receipt Date: 20040629
  Transmission Date: 20050211
  Serious: Yes (Disabling)
  Sender: FDA-Public Use
  Company Number: 04P-163-0265009-00

PATIENT
  Age: 73 Year
  Sex: Female
  Weight: 71.6683 kg

DRUGS (8)
  1. HUMIRA [Suspect]
     Indication: RHEUMATOID ARTHRITIS
     Dosage: 40 MG, 1 IN 2 WK, SUBCUTANEOUS
     Route: 058
     Dates: start: 20040202, end: 20040628
  2. METHOTREXATE SODIUM [Concomitant]
  3. FOLIC ACID [Concomitant]
  4. METFORMIN HCL [Concomitant]
  5. GLIMEPIRIDE [Concomitant]
  6. ENAPREL [Concomitant]
  7. ATORVASTATIN CALCIUM [Concomitant]
  8. MULTI-VITAMINS [Concomitant]

REACTIONS (4)
  - ABASIA [None]
  - AMNESIA [None]
  - BRAIN NEOPLASM [None]
  - DIFFICULTY IN WALKING [None]
